FAERS Safety Report 4669130-3 (Version None)
Quarter: 2005Q2

REPORT INFORMATION
  Report Type: 
  Country: None (occurrence: None)
  Receive Date: 20050519
  Receipt Date: 20050503
  Transmission Date: 20051028
  Serious: No
  Sender: FDA-Public Use
  Company Number: 11100

PATIENT

DRUGS (2)
  1. METHOTREXATE [Suspect]
     Indication: JUVENILE ARTHRITIS
     Dosage: PO
     Route: 048
  2. FOLIC ACID [Concomitant]

REACTIONS (1)
  - GASTROINTESTINAL DISORDER [None]
